FAERS Safety Report 14798053 (Version 1)
Quarter: 2018Q2

REPORT INFORMATION
  Report Type: Spontaneous
  Country: GR (occurrence: GR)
  Receive Date: 20180424
  Receipt Date: 20180424
  Transmission Date: 20180711
  Serious: Yes (Other)
  Sender: FDA-Public Use
  Company Number: GR-ACTELION-A-CH2018-170888

PATIENT
  Age: 49 Year
  Sex: Female

DRUGS (5)
  1. ZAVESCA [Suspect]
     Active Substance: MIGLUSTAT
     Indication: NIEMANN-PICK DISEASE
     Dosage: 2 DF, TID
     Route: 048
  2. ORPHEDRIN [Concomitant]
  3. VIMPAT [Concomitant]
     Active Substance: LACOSAMIDE
     Indication: EPILEPSY
     Dosage: 2 DF, TID
  4. KEPPRA [Concomitant]
     Active Substance: LEVETIRACETAM
     Indication: EPILEPSY
     Dosage: 1 DF, TID
  5. TROFOCARD [Concomitant]
     Dosage: 1 DF, TID

REACTIONS (6)
  - Drug ineffective [Unknown]
  - Haematoma [Unknown]
  - Seizure [Unknown]
  - Diarrhoea [Unknown]
  - Weight decreased [Unknown]
  - Dysphagia [Unknown]
